FAERS Safety Report 8250026-5 (Version None)
Quarter: 2012Q2

REPORT INFORMATION
  Report Type: 
  Country: None (occurrence: None)
  Receive Date: 20120402
  Receipt Date: 20120323
  Transmission Date: 20120825
  Serious: Yes (Death, Hospitalization)
  Sender: FDA-Public Use
  Company Number: US-ELI_LILLY_AND_COMPANY-US201008003298

PATIENT
  Sex: Female
  Weight: 34.694 kg

DRUGS (5)
  1. FORTEO [Suspect]
     Dosage: 20 UG, DAILY (1/D)
     Route: 058
  2. FORTEO [Suspect]
     Dosage: 20 UG, DAILY (1/D)
     Route: 058
  3. FORTEO [Suspect]
     Dosage: 20 UG, DAILY (1/D)
     Route: 058
  4. FORTEO [Suspect]
     Indication: OSTEOPOROSIS
     Dosage: 20 UG, DAILY (1/D)
     Route: 058
  5. VITAMIN D [Concomitant]

REACTIONS (15)
  - DEATH [None]
  - DRY MOUTH [None]
  - APTYALISM [None]
  - FATIGUE [None]
  - CONSTIPATION [None]
  - SLEEP DISORDER DUE TO A GENERAL MEDICAL CONDITION [None]
  - PNEUMONIA [None]
  - ASTHENIA [None]
  - DIARRHOEA [None]
  - THROAT IRRITATION [None]
  - WEIGHT FLUCTUATION [None]
  - INJECTION SITE HAEMORRHAGE [None]
  - WEIGHT DECREASED [None]
  - JOINT DISLOCATION [None]
  - HEADACHE [None]
